FAERS Safety Report 17460643 (Version 7)
Quarter: 2023Q1

REPORT INFORMATION
  Report Type: Spontaneous
  Country: GR (occurrence: GR)
  Receive Date: 20200226
  Receipt Date: 20230327
  Transmission Date: 20230418
  Serious: Yes (Hospitalization, Other)
  Sender: FDA-Public Use
  Company Number: GR-ROCHE-2528781

PATIENT
  Sex: Female
  Weight: 60 kg

DRUGS (102)
  1. FILGRASTIM [Suspect]
     Active Substance: FILGRASTIM
     Indication: Diffuse large B-cell lymphoma
     Dosage: UNK
     Route: 058
     Dates: start: 20190523, end: 20200117
  2. FILGRASTIM [Suspect]
     Active Substance: FILGRASTIM
     Indication: Anaemia
  3. FILGRASTIM [Suspect]
     Active Substance: FILGRASTIM
     Indication: Non-Hodgkin^s lymphoma
  4. FILGRASTIM [Suspect]
     Active Substance: FILGRASTIM
     Indication: Leukopenia
  5. FILGRASTIM [Suspect]
     Active Substance: FILGRASTIM
     Indication: Hypertension
  6. EPOETIN ALFA [Suspect]
     Active Substance: ERYTHROPOIETIN
     Indication: Anaemia
     Dosage: 1 CYCLE
     Route: 058
     Dates: start: 20190523, end: 20200124
  7. PREDNISONE [Suspect]
     Active Substance: PREDNISONE
     Indication: Diffuse large B-cell lymphoma
     Dosage: UNK, 8 CYCLES
     Route: 065
     Dates: start: 20190513, end: 20191013
  8. PREDNISONE [Suspect]
     Active Substance: PREDNISONE
     Indication: Leukopenia
  9. PREDNISONE [Suspect]
     Active Substance: PREDNISONE
     Indication: Non-Hodgkin^s lymphoma
  10. PREDNISONE [Suspect]
     Active Substance: PREDNISONE
     Indication: Anaemia
  11. PREDNISONE [Suspect]
     Active Substance: PREDNISONE
     Indication: Hypertension
  12. ALBUMIN HUMAN [Suspect]
     Active Substance: ALBUMIN HUMAN
     Indication: Non-Hodgkin^s lymphoma
     Dosage: 50 MILLIGRAM (1 CYLCE 50MG X2)
     Route: 042
     Dates: start: 20200110, end: 20200113
  13. ALBUMIN HUMAN [Suspect]
     Active Substance: ALBUMIN HUMAN
     Indication: Diffuse large B-cell lymphoma
  14. ALBUMIN HUMAN [Suspect]
     Active Substance: ALBUMIN HUMAN
     Indication: Leukopenia
  15. ALBUMIN HUMAN [Suspect]
     Active Substance: ALBUMIN HUMAN
     Indication: Anaemia
  16. ALBUMIN HUMAN [Suspect]
     Active Substance: ALBUMIN HUMAN
     Indication: Hypertension
  17. CUBICIN [Suspect]
     Active Substance: DAPTOMYCIN
     Indication: Hypertension
     Dosage: 1 CYCLE
     Route: 042
     Dates: start: 20200102, end: 20200113
  18. CUBICIN [Suspect]
     Active Substance: DAPTOMYCIN
     Indication: Leukopenia
  19. CUBICIN [Suspect]
     Active Substance: DAPTOMYCIN
     Indication: Non-Hodgkin^s lymphoma
  20. CUBICIN [Suspect]
     Active Substance: DAPTOMYCIN
     Indication: Anaemia
  21. CUBICIN [Suspect]
     Active Substance: DAPTOMYCIN
     Indication: Diffuse large B-cell lymphoma
  22. ERYTHROPOIETIN [Suspect]
     Active Substance: ERYTHROPOIETIN
     Indication: Hypertension
     Dosage: UNK
     Route: 065
  23. ERYTHROPOIETIN [Suspect]
     Active Substance: ERYTHROPOIETIN
     Indication: Diffuse large B-cell lymphoma
  24. ERYTHROPOIETIN [Suspect]
     Active Substance: ERYTHROPOIETIN
     Indication: Anaemia
  25. ERYTHROPOIETIN [Suspect]
     Active Substance: ERYTHROPOIETIN
     Indication: Leukopenia
  26. ERYTHROPOIETIN [Suspect]
     Active Substance: ERYTHROPOIETIN
     Indication: Non-Hodgkin^s lymphoma
  27. CYCLOPHOSPHAMIDE [Suspect]
     Active Substance: CYCLOPHOSPHAMIDE
     Indication: Diffuse large B-cell lymphoma
     Dosage: UNK, 8 CYCLES
     Route: 065
     Dates: start: 20190513, end: 20191013
  28. CYCLOPHOSPHAMIDE [Suspect]
     Active Substance: CYCLOPHOSPHAMIDE
     Indication: Anaemia
  29. CYCLOPHOSPHAMIDE [Suspect]
     Active Substance: CYCLOPHOSPHAMIDE
     Indication: Hypertension
  30. CYCLOPHOSPHAMIDE [Suspect]
     Active Substance: CYCLOPHOSPHAMIDE
     Indication: Non-Hodgkin^s lymphoma
  31. CYCLOPHOSPHAMIDE [Suspect]
     Active Substance: CYCLOPHOSPHAMIDE
     Indication: Leukopenia
  32. ALDACTONE [Suspect]
     Active Substance: SPIRONOLACTONE
     Indication: Non-Hodgkin^s lymphoma
     Dosage: 100 MILLIGRAM, 1 CYCLE
     Route: 048
     Dates: start: 20200105, end: 20200112
  33. ALDACTONE [Suspect]
     Active Substance: SPIRONOLACTONE
     Dosage: UNK
     Route: 042
  34. LASIX [Suspect]
     Active Substance: FUROSEMIDE
     Indication: Non-Hodgkin^s lymphoma
     Dosage: 1 CYCLE
     Route: 042
     Dates: start: 20200110, end: 20200113
  35. LASIX [Suspect]
     Active Substance: FUROSEMIDE
     Indication: Anaemia
  36. LASIX [Suspect]
     Active Substance: FUROSEMIDE
     Indication: Hypertension
  37. LASIX [Suspect]
     Active Substance: FUROSEMIDE
     Indication: Diffuse large B-cell lymphoma
  38. LASIX [Suspect]
     Active Substance: FUROSEMIDE
     Indication: Leukopenia
  39. DOXORUBICIN HYDROCHLORIDE [Suspect]
     Active Substance: DOXORUBICIN HYDROCHLORIDE
     Indication: Diffuse large B-cell lymphoma
     Dosage: UNK, 8 CYCLES
     Route: 065
     Dates: start: 20190513, end: 20191013
  40. LOSEC [Suspect]
     Active Substance: OMEPRAZOLE
     Indication: Diffuse large B-cell lymphoma
     Dosage: 1 CYCLES TWICE
     Route: 042
     Dates: start: 20191223, end: 20200113
  41. LOSEC [Suspect]
     Active Substance: OMEPRAZOLE
     Indication: Non-Hodgkin^s lymphoma
  42. LOSEC [Suspect]
     Active Substance: OMEPRAZOLE
     Indication: Leukopenia
  43. LOSEC [Suspect]
     Active Substance: OMEPRAZOLE
     Indication: Hypertension
  44. LOSEC [Suspect]
     Active Substance: OMEPRAZOLE
     Indication: Anaemia
  45. NORVASC [Suspect]
     Active Substance: AMLODIPINE BESYLATE
     Indication: Hypertension
     Dosage: UNK
     Route: 058
  46. NORVASC [Suspect]
     Active Substance: AMLODIPINE BESYLATE
     Indication: Diffuse large B-cell lymphoma
     Dosage: 5 MILLIGRAM, 1 CYCLE
     Route: 048
     Dates: start: 20190515, end: 20190516
  47. NORVASC [Suspect]
     Active Substance: AMLODIPINE BESYLATE
     Indication: Anaemia
  48. NORVASC [Suspect]
     Active Substance: AMLODIPINE BESYLATE
     Indication: Non-Hodgkin^s lymphoma
  49. NORVASC [Suspect]
     Active Substance: AMLODIPINE BESYLATE
     Indication: Leukopenia
  50. CANCIDAS [Suspect]
     Active Substance: CASPOFUNGIN ACETATE
     Indication: Non-Hodgkin^s lymphoma
     Dosage: 50 MILLIGRAM
     Route: 042
     Dates: start: 20200105, end: 20200113
  51. CANCIDAS [Suspect]
     Active Substance: CASPOFUNGIN ACETATE
     Indication: Diffuse large B-cell lymphoma
  52. CANCIDAS [Suspect]
     Active Substance: CASPOFUNGIN ACETATE
     Indication: Hypertension
  53. CANCIDAS [Suspect]
     Active Substance: CASPOFUNGIN ACETATE
     Indication: Leukopenia
  54. CANCIDAS [Suspect]
     Active Substance: CASPOFUNGIN ACETATE
     Indication: Anaemia
  55. MABTHERA [Suspect]
     Active Substance: RITUXIMAB
     Indication: Non-Hodgkin^s lymphoma
     Dosage: 650 MILLIGRAM, 1 CYCLE
     Route: 042
     Dates: start: 20191222, end: 20200113
  56. MABTHERA [Suspect]
     Active Substance: RITUXIMAB
     Indication: Diffuse large B-cell lymphoma
     Dosage: 6 CYCLES
     Route: 058
     Dates: start: 20190625, end: 20191009
  57. MABTHERA [Suspect]
     Active Substance: RITUXIMAB
     Indication: Leukopenia
  58. MABTHERA [Suspect]
     Active Substance: RITUXIMAB
     Indication: Hypertension
  59. MABTHERA [Suspect]
     Active Substance: RITUXIMAB
     Indication: Anaemia
  60. VALTREX [Suspect]
     Active Substance: VALACYCLOVIR HYDROCHLORIDE
     Indication: Non-Hodgkin^s lymphoma
     Dosage: 500 MILLIGRAM
     Route: 048
     Dates: start: 20190513, end: 20190516
  61. VALTREX [Suspect]
     Active Substance: VALACYCLOVIR HYDROCHLORIDE
     Indication: Anaemia
     Dosage: 500 MILLIGRAM,, 1 CYCLE
     Route: 048
     Dates: start: 20200108, end: 20200113
  62. VALTREX [Suspect]
     Active Substance: VALACYCLOVIR HYDROCHLORIDE
     Indication: Diffuse large B-cell lymphoma
     Dosage: UNK
     Route: 042
  63. VALTREX [Suspect]
     Active Substance: VALACYCLOVIR HYDROCHLORIDE
     Indication: Leukopenia
     Dosage: UNK
     Route: 058
  64. VALTREX [Suspect]
     Active Substance: VALACYCLOVIR HYDROCHLORIDE
     Indication: Hypertension
  65. VEPESID [Suspect]
     Active Substance: ETOPOSIDE
     Indication: Non-Hodgkin^s lymphoma
     Dosage: UNK
     Route: 058
  66. VEPESID [Suspect]
     Active Substance: ETOPOSIDE
     Indication: Product used for unknown indication
     Dosage: 2 CYCLE
     Route: 042
     Dates: start: 20191119, end: 20200113
  67. CYTARABINE [Suspect]
     Active Substance: CYTARABINE
     Indication: Diffuse large B-cell lymphoma
     Dosage: UNK, 2 CYCLES
     Route: 065
     Dates: start: 20191113, end: 20191223
  68. CYTARABINE [Suspect]
     Active Substance: CYTARABINE
     Indication: Leukopenia
  69. CYTARABINE [Suspect]
     Active Substance: CYTARABINE
     Indication: Hypertension
  70. CYTARABINE [Suspect]
     Active Substance: CYTARABINE
     Indication: Anaemia
  71. CYTARABINE [Suspect]
     Active Substance: CYTARABINE
     Indication: Non-Hodgkin^s lymphoma
  72. CHLORPHENIRAMINE MALEATE [Suspect]
     Active Substance: CHLORPHENIRAMINE MALEATE
     Indication: Leukopenia
     Dosage: UNK
     Route: 065
  73. CHLORPHENIRAMINE MALEATE [Suspect]
     Active Substance: CHLORPHENIRAMINE MALEATE
     Indication: Anaemia
  74. CHLORPHENIRAMINE MALEATE [Suspect]
     Active Substance: CHLORPHENIRAMINE MALEATE
     Indication: Hypertension
  75. CHLORPHENIRAMINE MALEATE [Suspect]
     Active Substance: CHLORPHENIRAMINE MALEATE
     Indication: Diffuse large B-cell lymphoma
  76. CHLORPHENIRAMINE MALEATE [Suspect]
     Active Substance: CHLORPHENIRAMINE MALEATE
     Indication: Non-Hodgkin^s lymphoma
  77. VINCRISTINE SULFATE [Suspect]
     Active Substance: VINCRISTINE SULFATE
     Indication: Diffuse large B-cell lymphoma
     Dosage: UNK, 8 CYCLES
     Route: 065
     Dates: start: 20190513, end: 20191013
  78. VINCRISTINE SULFATE [Suspect]
     Active Substance: VINCRISTINE SULFATE
     Indication: Hypertension
  79. VINCRISTINE SULFATE [Suspect]
     Active Substance: VINCRISTINE SULFATE
     Indication: Anaemia
  80. VINCRISTINE SULFATE [Suspect]
     Active Substance: VINCRISTINE SULFATE
     Indication: Leukopenia
  81. VINCRISTINE SULFATE [Suspect]
     Active Substance: VINCRISTINE SULFATE
     Indication: Non-Hodgkin^s lymphoma
  82. RITUXAN [Suspect]
     Active Substance: RITUXIMAB
     Indication: Diffuse large B-cell lymphoma
     Dosage: UNK, 8 CYCLES
     Route: 042
     Dates: start: 20190513, end: 20191013
  83. RITUXAN [Suspect]
     Active Substance: RITUXIMAB
     Indication: Non-Hodgkin^s lymphoma
     Dosage: UNK, 2 CYCLES
     Route: 042
     Dates: start: 20191113, end: 20191223
  84. RITUXAN [Suspect]
     Active Substance: RITUXIMAB
     Dosage: UNK, 3 CYCLES
     Route: 058
     Dates: start: 20190513, end: 20190625
  85. RITUXAN [Suspect]
     Active Substance: RITUXIMAB
     Dosage: 1400 MILLIGRAM, 1 CYCLE
     Route: 058
     Dates: start: 20191113, end: 20191210
  86. VALACYCLOVIR HYDROCHLORIDE [Suspect]
     Active Substance: VALACYCLOVIR HYDROCHLORIDE
     Indication: Product used for unknown indication
     Dosage: UNK
     Route: 065
  87. DAPTOMYCIN [Suspect]
     Active Substance: DAPTOMYCIN
     Indication: Product used for unknown indication
     Dosage: UNK
     Route: 065
  88. CYTARABINE [Suspect]
     Active Substance: CYTARABINE
     Indication: Product used for unknown indication
     Dosage: 2 CYCLES
     Route: 042
     Dates: start: 20191123, end: 20200113
  89. CYTARABINE [Suspect]
     Active Substance: CYTARABINE
     Dosage: UNK
     Route: 058
  90. CHLORPHENIRAMINE MALEATE [Suspect]
     Active Substance: CHLORPHENIRAMINE MALEATE
     Indication: Non-Hodgkin^s lymphoma
     Dosage: UNK
     Route: 042
  91. CHLORPHENIRAMINE MALEATE [Suspect]
     Active Substance: CHLORPHENIRAMINE MALEATE
     Indication: Product used for unknown indication
     Dosage: 1 CYCLE
     Route: 048
     Dates: start: 20200110, end: 20200112
  92. DOXORUBICIN [Suspect]
     Active Substance: DOXORUBICIN
     Indication: Non-Hodgkin^s lymphoma
     Dosage: 8 CYCLES
     Route: 042
     Dates: start: 20190513, end: 20191009
  93. DOXORUBICIN [Suspect]
     Active Substance: DOXORUBICIN
     Indication: Non-Hodgkin^s lymphoma
     Dosage: UNK
     Route: 058
  94. CISPLATIN [Suspect]
     Active Substance: CISPLATIN
     Indication: Non-Hodgkin^s lymphoma
     Dosage: UNK
     Route: 058
  95. CISPLATIN [Suspect]
     Active Substance: CISPLATIN
     Indication: Diffuse large B-cell lymphoma
     Dosage: 38 MILLIGRAM,2 CYCLES
     Route: 042
     Dates: start: 20191119, end: 20200113
  96. MEROPENEM [Suspect]
     Active Substance: MEROPENEM
     Indication: Non-Hodgkin^s lymphoma
     Dosage: 1 CYCLE 2GX3
     Route: 042
     Dates: start: 20200103, end: 20200113
  97. ETOPOSIDE [Suspect]
     Active Substance: ETOPOSIDE
     Indication: Diffuse large B-cell lymphoma
     Dosage: UNK, 2 CYCLES
     Route: 065
     Dates: start: 20191113, end: 20191223
  98. METHYLPREDNISOLONE [Suspect]
     Active Substance: METHYLPREDNISOLONE
     Indication: Diffuse large B-cell lymphoma
     Dosage: UNK, 2 CYCLES
     Route: 065
     Dates: start: 20191113, end: 20191223
  99. EPREX [Suspect]
     Active Substance: ERYTHROPOIETIN
     Indication: Anaemia
     Dosage: UNK UNK, CYCLICAL
     Route: 065
     Dates: start: 20190523, end: 20200124
  100. DOXORUBICIN HYDROCHLORIDE [Suspect]
     Active Substance: DOXORUBICIN HYDROCHLORIDE
     Indication: Non-Hodgkin^s lymphoma
     Dosage: 8 CYCLES
     Route: 065
     Dates: start: 20190513, end: 20200124
  101. DOXORUBICIN HYDROCHLORIDE [Suspect]
     Active Substance: DOXORUBICIN HYDROCHLORIDE
     Dosage: UNK
     Route: 065
  102. CHLORPHENIRAMINE MALEATE [Suspect]
     Active Substance: CHLORPHENIRAMINE MALEATE
     Indication: Non-Hodgkin^s lymphoma
     Dosage: 1 CYCLE
     Route: 065
     Dates: start: 20200110, end: 20200112

REACTIONS (6)
  - Diffuse large B-cell lymphoma refractory [Unknown]
  - Neoplasm progression [Unknown]
  - Disease progression [Unknown]
  - No adverse event [Unknown]
  - Off label use [Unknown]
  - Product use in unapproved indication [Unknown]

NARRATIVE: CASE EVENT DATE: 20190513
